FAERS Safety Report 13237645 (Version 1)
Quarter: 2017Q1

REPORT INFORMATION
  Report Type: Spontaneous
  Country: US (occurrence: US)
  Receive Date: 20170215
  Receipt Date: 20170215
  Transmission Date: 20170428
  Serious: Yes (Hospitalization)
  Sender: FDA-Public Use
  Company Number: None

PATIENT
  Age: 65 Year
  Sex: Female
  Weight: 95.26 kg

DRUGS (1)
  1. LETROZOLE. [Suspect]
     Active Substance: LETROZOLE
     Dates: end: 20170105

REACTIONS (3)
  - Constipation [None]
  - Asthenia [None]
  - Oedema peripheral [None]

NARRATIVE: CASE EVENT DATE: 20170130
